FAERS Safety Report 7327425-9 (Version None)
Quarter: 2011Q1

REPORT INFORMATION
  Report Type: 
  Country: None (occurrence: None)
  Receive Date: 20110303
  Receipt Date: 20110223
  Transmission Date: 20110831
  Serious: Yes (Other)
  Sender: FDA-Public Use
  Company Number: US-ASTRAZENECA-2007UW02049

PATIENT
  Age: 48 Year
  Sex: Female
  Weight: 77.1 kg

DRUGS (17)
  1. SEROQUEL [Suspect]
     Dosage: 150 MG - 200 MG
     Route: 048
     Dates: start: 20041201, end: 20050401
  2. SEROQUEL [Suspect]
     Route: 048
     Dates: start: 20050222
  3. METHADONE HYDROCHLORIDE [Concomitant]
     Indication: BACK PAIN
     Route: 048
     Dates: start: 20060101
  4. OXYCODONE HCL AND ACETAMINOPHEN [Concomitant]
     Dosage: 5/325 DISPENSED
     Dates: start: 20011116
  5. SINGULAIR [Concomitant]
     Dates: start: 20060222
  6. SEROQUEL [Suspect]
     Route: 048
     Dates: start: 20020701
  7. SEROQUEL [Suspect]
     Route: 048
     Dates: start: 20011211
  8. DEXATRIM [Concomitant]
     Indication: WEIGHT CONTROL
     Dates: start: 19800101
  9. PROZAC [Concomitant]
     Dosage: 20 MG 2 TABLET DAILY
     Dates: start: 20011211
  10. CYCLOBENZAPRINE [Concomitant]
     Dates: start: 20011116
  11. HYDROCODONE BITARTRATE + ACETAMINOPHEN [Concomitant]
     Dates: start: 20011119
  12. LORAZEPAM [Concomitant]
     Dates: start: 20060222
  13. CLONAZEPAM [Concomitant]
     Dates: start: 20011115
  14. HYDROXYZINE [Concomitant]
     Dates: start: 20011121
  15. SEROQUEL [Suspect]
     Indication: DEPRESSION
     Dosage: 150 MG - 200 MG
     Route: 048
     Dates: start: 20011201, end: 20030401
  16. PROTONIX [Concomitant]
     Dates: start: 20060222
  17. TRAZODONE [Concomitant]
     Dates: start: 20060510

REACTIONS (11)
  - BLOOD CHOLESTEROL INCREASED [None]
  - LIMB DEFORMITY [None]
  - HYPERLIPIDAEMIA [None]
  - FEELING ABNORMAL [None]
  - OBESITY [None]
  - DIABETIC GASTROPARESIS [None]
  - DIABETES MELLITUS INADEQUATE CONTROL [None]
  - TYPE 2 DIABETES MELLITUS [None]
  - ABNORMAL DREAMS [None]
  - HYPERCHOLESTEROLAEMIA [None]
  - DEFORMITY [None]
